FAERS Safety Report 4498905-9 (Version None)
Quarter: 2004Q4

REPORT INFORMATION
  Report Type: 
  Country: None (occurrence: None)
  Receive Date: 20041110
  Receipt Date: 20041110
  Transmission Date: 20050328
  Serious: No
  Sender: FDA-Public Use
  Company Number: None

PATIENT
  Age: 46 Year

DRUGS (2)
  1. DEMEROL [Suspect]
  2. VERSED [Suspect]

REACTIONS (1)
  - ERYTHEMA [None]
